FAERS Safety Report 22131107 (Version 1)
Quarter: 2023Q1

REPORT INFORMATION
  Report Type: Spontaneous
  Country: US (occurrence: None)
  Receive Date: 20230322
  Receipt Date: 20230322
  Transmission Date: 20230417
  Serious: Yes (Disabling, Other)
  Sender: FDA-Public Use
  Company Number: None

PATIENT
  Age: 66 Year
  Sex: Female
  Weight: 60.75 kg

DRUGS (7)
  1. PROLIA [Suspect]
     Active Substance: DENOSUMAB
     Indication: Osteoporosis
     Dosage: OTHER QUANTITY : 1 INJECTION(S);?OTHER FREQUENCY : 2X A YEAR;?
     Route: 030
     Dates: start: 20151001, end: 20220722
  2. PROLIA [Concomitant]
     Active Substance: DENOSUMAB
  3. TRAMADOL [Concomitant]
     Active Substance: TRAMADOL
  4. HYDROCODONE [Concomitant]
     Active Substance: HYDROCODONE
  5. MELOXICAM [Concomitant]
     Active Substance: MELOXICAM
  6. CALCIUM [Concomitant]
     Active Substance: CALCIUM
  7. VITAMIN D3 [Concomitant]
     Active Substance: CHOLECALCIFEROL

REACTIONS (5)
  - Tooth fracture [None]
  - Therapy interrupted [None]
  - Rebound effect [None]
  - Pathological fracture [None]
  - Multiple fractures [None]

NARRATIVE: CASE EVENT DATE: 20220927
